FAERS Safety Report 7981675-7 (Version None)
Quarter: 2011Q4

REPORT INFORMATION
  Report Type: 
  Country: None (occurrence: None)
  Receive Date: 20111215
  Receipt Date: 20111208
  Transmission Date: 20120403
  Serious: Yes (Hospitalization)
  Sender: FDA-Public Use
  Company Number: US-JNJFOC-20111204387

PATIENT
  Age: 40 Year
  Sex: Female
  Weight: 63.5 kg

DRUGS (5)
  1. ADDERALL 5 [Concomitant]
     Indication: ATTENTION DEFICIT/HYPERACTIVITY DISORDER
     Route: 065
  2. PROZAC [Concomitant]
     Indication: DEPRESSION
     Dosage: 1 DAILY, 3-4 YEARS
     Route: 065
  3. ZYRTEC [Suspect]
     Indication: MULTIPLE ALLERGIES
     Dosage: 1 TABLET DAILY FOR ABOUT 2 YEARS
     Route: 048
     Dates: end: 20111207
  4. ZYRTEC [Suspect]
     Route: 048
  5. PROSOM [Concomitant]
     Indication: INSOMNIA
     Dosage: 1 NIGHTLY FROM 1 YEAR
     Route: 065

REACTIONS (3)
  - CHAPPED LIPS [None]
  - ORAL PAIN [None]
  - SWOLLEN TONGUE [None]
